FAERS Safety Report 11803393 (Version 3)
Quarter: 2019Q4

REPORT INFORMATION
  Report Type: Spontaneous
  Country: US (occurrence: US)
  Receive Date: 20151204
  Receipt Date: 20191021
  Transmission Date: 20200122
  Serious: Yes (Other)
  Sender: FDA-Public Use
  Company Number: US-PFIZER INC-2015421670

PATIENT
  Age: 87 Year
  Sex: Male

DRUGS (9)
  1. VIAGRA [Suspect]
     Active Substance: SILDENAFIL CITRATE
     Dosage: 50 MG, AS NEEDED (50 MG 1 TABLET)
     Dates: start: 20080612, end: 2008
  2. VIAGRA [Suspect]
     Active Substance: SILDENAFIL CITRATE
     Dosage: UNK
     Route: 048
     Dates: start: 2012, end: 2014
  3. ASPIRIN [ACETYLSALICYLIC ACID] [Concomitant]
     Active Substance: ASPIRIN
     Dosage: LOW DOSE
     Dates: start: 2008
  4. VIAGRA [Suspect]
     Active Substance: SILDENAFIL CITRATE
     Dosage: 50 MG, AS NEEDED (50 MG 1 TABLET)
     Dates: start: 20110601, end: 20151029
  5. VIAGRA [Suspect]
     Active Substance: SILDENAFIL CITRATE
     Dosage: UNK, REGULARLY
     Route: 048
     Dates: start: 2006, end: 20151102
  6. VIAGRA [Suspect]
     Active Substance: SILDENAFIL CITRATE
     Dosage: 75 MG (50 MG 1 1/2 TABLET), AS NEEDED (MAXIMUM OF 1 1/2 TABLET IN 24 HOURS)
     Route: 048
     Dates: start: 20080612
  7. VIAGRA [Suspect]
     Active Substance: SILDENAFIL CITRATE
     Indication: ERECTILE DYSFUNCTION
     Dosage: 50 MG, AS NEEDED (50 MG 1 TABLET)
     Route: 048
     Dates: start: 20061004
  8. VIAGRA [Suspect]
     Active Substance: SILDENAFIL CITRATE
     Dosage: 50 MG, AS NEEDED (50 MG 1 TABLET)
     Dates: start: 20061004, end: 2007
  9. CIALIS [Suspect]
     Active Substance: TADALAFIL
     Indication: ERECTILE DYSFUNCTION
     Dosage: 10 MG, ONCE OR TWICE A MONTH
     Dates: start: 20090211, end: 2009

REACTIONS (9)
  - Malignant melanoma in situ [Unknown]
  - Emotional distress [Unknown]
  - Anaemia [Recovered/Resolved]
  - Oral herpes [Recovered/Resolved]
  - Gastritis haemorrhagic [Recovered/Resolved]
  - Arthritis [Recovered/Resolved]
  - Adenocarcinoma of colon [Unknown]
  - Pneumonia [Recovered/Resolved]
  - Anxiety [Unknown]

NARRATIVE: CASE EVENT DATE: 201111
